FAERS Safety Report 7266085-2 (Version None)
Quarter: 2011Q1

REPORT INFORMATION
  Report Type: 
  Country: None (occurrence: None)
  Receive Date: 20110131
  Receipt Date: 20100625
  Transmission Date: 20110831
  Serious: No
  Sender: FDA-Public Use
  Company Number: US-ABBOTT-09P-163-0598412-00

PATIENT
  Sex: Male
  Weight: 81.72 kg

DRUGS (4)
  1. LUPRON DEPOT [Suspect]
     Indication: PROSTATE CANCER
     Route: 030
     Dates: start: 20090707, end: 20100407
  2. LEVOTHYROXINE SODIUM [Concomitant]
  3. LEVOTHYROXINE SODIUM [Concomitant]
     Indication: PRODUCT USED FOR UNKNOWN INDICATION
  4. DEPO-PROVERA [Concomitant]
     Indication: PRODUCT USED FOR UNKNOWN INDICATION
     Dates: start: 20090801, end: 20100401

REACTIONS (7)
  - ALOPECIA [None]
  - MOOD SWINGS [None]
  - HERPES VIRUS INFECTION [None]
  - HYPERHIDROSIS [None]
  - ARTHRALGIA [None]
  - LOSS OF LIBIDO [None]
  - INSOMNIA [None]
